FAERS Safety Report 9734176 (Version 1)
Quarter: 2013Q4

REPORT INFORMATION
  Report Type: Spontaneous
  Country: US (occurrence: US)
  Receive Date: 20131205
  Receipt Date: 20131205
  Transmission Date: 20140711
  Serious: Yes (Other)
  Sender: FDA-Public Use
  Company Number: US-GILEAD-2013-0089290

PATIENT
  Age: 46 Year
  Sex: Female

DRUGS (2)
  1. LETAIRIS [Suspect]
     Indication: PRODUCT USED FOR UNKNOWN INDICATION
     Dosage: 10 MG, QD
     Route: 048
     Dates: start: 20091018
  2. REMODULIN [Concomitant]

REACTIONS (4)
  - Pulmonary arterial hypertension [Unknown]
  - Scleroderma [Unknown]
  - Abdominal discomfort [Unknown]
  - Vomiting [Unknown]
